FAERS Safety Report 4828766-7 (Version None)
Quarter: 2005Q4

REPORT INFORMATION
  Report Type: 
  Country: None (occurrence: None)
  Receive Date: 20051115
  Receipt Date: 20050930
  Transmission Date: 20060501
  Serious: Yes (Death, Hospitalization)
  Sender: FDA-Public Use
  Company Number: US-MERCK-0510USA00741

PATIENT
  Age: 67 Year
  Sex: Female
  Weight: 77 kg

DRUGS (11)
  1. VIOXX [Suspect]
     Indication: PAIN IN EXTREMITY
     Route: 048
     Dates: start: 19991209, end: 20020306
  2. DOXYCYCLINE [Concomitant]
     Route: 065
  3. ELAVIL [Concomitant]
     Route: 065
  4. NORITATE [Concomitant]
     Route: 065
  5. PREMARIN [Concomitant]
     Route: 065
  6. ROCALTROL [Concomitant]
     Route: 065
  7. RENOVA [Concomitant]
     Route: 065
  8. SPIRONOLACTONE [Concomitant]
     Route: 065
  9. SYNTHROID [Concomitant]
     Route: 065
  10. VALTREX [Concomitant]
     Route: 065
  11. ZESTRIL [Concomitant]
     Route: 065

REACTIONS (4)
  - CARDIAC ARREST [None]
  - MYOCARDIAL INFARCTION [None]
  - VARICOSE VEIN [None]
  - VEIN DISORDER [None]
